FAERS Safety Report 13618594 (Version 1)
Quarter: 2017Q2

REPORT INFORMATION
  Report Type: Report from Study
  Country: US (occurrence: US)
  Receive Date: 20170606
  Receipt Date: 20170606
  Transmission Date: 20170830
  Serious: Yes (Hospitalization)
  Sender: FDA-Public Use
  Company Number: US-009507513-1704USA006670

PATIENT
  Age: 65 Year
  Sex: Male
  Weight: 122.5 kg

DRUGS (18)
  1. PRINIVIL [Suspect]
     Active Substance: LISINOPRIL
     Indication: HYPERTENSION
     Dosage: 5 MG, QD
     Route: 048
     Dates: start: 200107, end: 20170406
  2. ASPIRIN. [Concomitant]
     Active Substance: ASPIRIN
     Indication: CORONARY ARTERY DISEASE
     Dosage: TOTAL DAILY DOSE: 325 MG,
     Dates: start: 201307
  3. PLACEBO [Suspect]
     Active Substance: UNSPECIFIED INGREDIENT
     Dosage: UNK
     Route: 048
     Dates: start: 20170329, end: 20170501
  4. LANTUS [Concomitant]
     Active Substance: INSULIN GLARGINE
     Indication: TYPE 2 DIABETES MELLITUS
     Dosage: TOTAL DAILY DOSE: 120 IU,
     Dates: start: 200007, end: 20170521
  5. WARFARIN [Concomitant]
     Active Substance: WARFARIN
     Indication: CORONARY ARTERY DISEASE
     Dosage: TOTAL DAILY DOSE: 7.5 MG
     Dates: start: 201604
  6. PLACEBO [Suspect]
     Active Substance: UNSPECIFIED INGREDIENT
     Dosage: UNK
     Route: 048
     Dates: start: 20170505, end: 20170521
  7. METOLAZONE. [Concomitant]
     Active Substance: METOLAZONE
     Indication: HYPERTENSION
     Dosage: TOTAL DAILY DOSE: 2.5 MG, PRN
     Dates: start: 201207
  8. HUMALOG [Concomitant]
     Active Substance: INSULIN LISPRO
     Indication: TYPE 2 DIABETES MELLITUS
     Dosage: TOTAL DAILY DOSE: 120 IU,
     Dates: start: 200507
  9. CARVEDILOL. [Concomitant]
     Active Substance: CARVEDILOL
     Indication: HYPERTENSION
     Dosage: TOTAL DAILY DOSE: 6.25 MG,
     Dates: start: 201604
  10. TORSEMIDE. [Concomitant]
     Active Substance: TORSEMIDE
     Indication: CARDIAC FAILURE CONGESTIVE
     Dosage: TOTAL DAILY DOSE: 40 MG,
     Dates: start: 200807
  11. LAMOTRIGINE. [Concomitant]
     Active Substance: LAMOTRIGINE
     Indication: BIPOLAR DISORDER
     Dosage: TOTAL DAILY DOSE: 200 MG,
     Dates: start: 200707
  12. PRINIVIL [Suspect]
     Active Substance: LISINOPRIL
     Dosage: 2.5 MG, QD
     Route: 048
     Dates: start: 20170407
  13. PLACEBO [Suspect]
     Active Substance: UNSPECIFIED INGREDIENT
     Indication: TYPE 2 DIABETES MELLITUS
     Dosage: UNK
     Route: 048
     Dates: start: 20170302, end: 20170322
  14. TRULICITY [Concomitant]
     Active Substance: DULAGLUTIDE
     Indication: TYPE 2 DIABETES MELLITUS
     Dosage: 1.5 MG, QW
     Dates: start: 201610
  15. ATORVASTATIN [Concomitant]
     Active Substance: ATORVASTATIN
     Indication: HYPERLIPIDAEMIA
     Dosage: TOTAL DAILY DOSE: 10 MG,
     Dates: start: 200107
  16. ALLOPURINOL. [Concomitant]
     Active Substance: ALLOPURINOL
     Indication: GOUT
     Dosage: TOTAL DAILY DOSE: 300 MG,
     Dates: start: 198707
  17. LORATADINE. [Concomitant]
     Active Substance: LORATADINE
     Indication: SEASONAL ALLERGY
     Dosage: TOTAL DAILY DOSE: 10 MG, PRN
     Dates: start: 201007
  18. WARFARIN [Concomitant]
     Active Substance: WARFARIN
     Dosage: TOTAL DAILY DOSE: 5 MG, FREQUENCY: UNKNOWN
     Dates: start: 201604

REACTIONS (2)
  - Cellulitis [Recovered/Resolved]
  - Chest pain [Recovered/Resolved]

NARRATIVE: CASE EVENT DATE: 20170305
